FAERS Safety Report 4493830-1 (Version None)
Quarter: 2004Q4

REPORT INFORMATION
  Report Type: 
  Country: None (occurrence: None)
  Receive Date: 20041102
  Receipt Date: 20041022
  Transmission Date: 20050328
  Serious: Yes (Hospitalization)
  Sender: FDA-Public Use
  Company Number: 2004240455FR

PATIENT
  Age: 83 Year
  Sex: Female

DRUGS (7)
  1. CARDIZEM [Suspect]
     Dosage: 300 MG, QD, ORAL
     Route: 048
     Dates: start: 19990615
  2. ALDACTONE [Suspect]
     Dosage: 1 DF, QD, ORAL
     Route: 048
     Dates: start: 20030615
  3. LEBOCAR (LEVODOPA, CARBIDOPA) TABLET [Suspect]
     Dosage: 3 DF, QD, ORAL
     Route: 048
     Dates: start: 19970615
  4. LOMEPRAL (OMEPRAZOLE) CAPSULE [Suspect]
     Dosage: 10 MG, ORAL
     Route: 048
     Dates: start: 20030615
  5. PLAVIX [Suspect]
     Dosage: 75 MG, QD, ORAL
     Route: 048
     Dates: start: 20040615, end: 20040820
  6. BENSERAZIDE (BENSERAZIDE) [Suspect]
     Dates: start: 19970615
  7. NICORANDIL (NICORANDIL) [Suspect]
     Dates: start: 19960615

REACTIONS (2)
  - IDIOPATHIC THROMBOCYTOPENIC PURPURA [None]
  - THROMBOCYTOPENIA [None]
